FAERS Safety Report 20175005 (Version 1)
Quarter: 2021Q4

REPORT INFORMATION
  Report Type: Spontaneous
  Country: US (occurrence: None)
  Receive Date: 20211209
  Receipt Date: 20211209
  Transmission Date: 20220303
  Serious: Yes (Death)
  Sender: FDA-Public Use
  Company Number: None

PATIENT
  Age: 80 Year
  Sex: Male
  Weight: 89.1 kg

DRUGS (3)
  1. TOLVAPTAN [Suspect]
     Active Substance: TOLVAPTAN
     Indication: Hyponatraemia
     Dosage: FREQUENCY : DAILY;?
     Route: 048
     Dates: start: 20201117, end: 20211206
  2. TOLVAPTAN [Suspect]
     Active Substance: TOLVAPTAN
     Indication: Blood osmolarity decreased
  3. Tolvaptan 15mg [Concomitant]
     Dates: start: 20201117, end: 20211206

REACTIONS (1)
  - Death [None]

NARRATIVE: CASE EVENT DATE: 20211206
